FAERS Safety Report 7776606-9 (Version None)
Quarter: 2011Q3

REPORT INFORMATION
  Report Type: 
  Country: None (occurrence: None)
  Receive Date: 20110926
  Receipt Date: 20110918
  Transmission Date: 20111222
  Serious: Yes (Other)
  Sender: FDA-Public Use
  Company Number: EG-JNJFOC-20110908473

PATIENT
  Age: 10 Year
  Sex: Male
  Weight: 30 kg

DRUGS (1)
  1. TOPAMAX [Suspect]
     Indication: HEADACHE
     Route: 065
     Dates: start: 20110903, end: 20110910

REACTIONS (2)
  - NIGHT BLINDNESS [None]
  - VISUAL ACUITY REDUCED [None]
